FAERS Safety Report 9338351 (Version 2)
Quarter: 2013Q3

REPORT INFORMATION
  Report Type: Spontaneous
  Country: US (occurrence: US)
  Receive Date: 20130610
  Receipt Date: 20130704
  Transmission Date: 20140515
  Serious: No
  Sender: FDA-Public Use
  Company Number: US-PFIZER INC-2013171680

PATIENT
  Age: 49 Year
  Sex: Male

DRUGS (5)
  1. CAMPTOSAR [Suspect]
     Indication: RECTAL CANCER
     Dosage: 320 MG, UNK
     Route: 042
  2. CAMPTOSAR [Suspect]
     Dosage: 180 MG/M? , UNK
     Route: 042
     Dates: start: 20130319, end: 20130514
  3. ERBITUX [Concomitant]
     Indication: RECTAL CANCER
     Dosage: UNK
     Dates: start: 20130319, end: 20130514
  4. FLUOROURACIL [Concomitant]
     Indication: RECTAL CANCER
     Dosage: UNK
     Dates: start: 20130319, end: 20130514
  5. FOLINIC ACID [Concomitant]
     Indication: RECTAL CANCER
     Dosage: UNK
     Dates: start: 20130319, end: 20130514

REACTIONS (2)
  - Disease progression [Unknown]
  - Rectal cancer [Unknown]
